FAERS Safety Report 25138406 (Version 1)
Quarter: 2025Q1

REPORT INFORMATION
  Report Type: Spontaneous
  Country: US (occurrence: US)
  Receive Date: 20250330
  Receipt Date: 20250330
  Transmission Date: 20250409
  Serious: Yes (Death)
  Sender: TEVA
  Company Number: US-TEVA-VS-3313226

PATIENT
  Age: 96 Year
  Sex: Female

DRUGS (6)
  1. ZOLPIDEM TARTRATE [Suspect]
     Active Substance: ZOLPIDEM TARTRATE
     Indication: Product used for unknown indication
     Route: 048
     Dates: end: 20231029
  2. DIAZEPAM [Suspect]
     Active Substance: DIAZEPAM
     Indication: Product used for unknown indication
     Route: 065
     Dates: start: 202309
  3. WARFARIN SODIUM [Suspect]
     Active Substance: WARFARIN SODIUM
     Indication: Product used for unknown indication
     Route: 065
  4. MELATONIN [Suspect]
     Active Substance: MELATONIN
     Indication: Product used for unknown indication
     Route: 065
  5. METHOCARBAMOL [Suspect]
     Active Substance: METHOCARBAMOL
     Indication: Product used for unknown indication
     Route: 065
  6. XANAX [Suspect]
     Active Substance: ALPRAZOLAM
     Indication: Product used for unknown indication
     Route: 030
     Dates: start: 20230901, end: 20231029

REACTIONS (3)
  - Death [Fatal]
  - Unevaluable event [Unknown]
  - Wrong product administered [Unknown]
